FAERS Safety Report 7875611-1 (Version None)
Quarter: 2011Q4

REPORT INFORMATION
  Report Type: 
  Country: None (occurrence: None)
  Receive Date: 20111031
  Receipt Date: 20110928
  Transmission Date: 20120403
  Serious: Yes (Death)
  Sender: FDA-Public Use
  Company Number: NL-ROCHE-789122

PATIENT
  Sex: Male
  Weight: 79 kg

DRUGS (21)
  1. DEXAMETHASONE [Suspect]
     Dosage: CYCLE: 2.
     Route: 042
  2. CISPLATIN [Suspect]
     Dosage: CYCLE 2.
     Route: 042
  3. METHOTREXATE [Suspect]
     Route: 037
  4. DI-ADRESON-F [Concomitant]
     Route: 037
     Dates: start: 20100724, end: 20100724
  5. CYTARABINE [Suspect]
     Indication: B-CELL LYMPHOMA
     Dosage: CYCLE 1.
     Route: 042
  6. METHOTREXATE [Suspect]
     Route: 042
  7. THIAMINE HCL [Concomitant]
     Indication: PROPHYLAXIS
     Route: 042
  8. CISPLATIN [Suspect]
     Indication: B-CELL LYMPHOMA
     Dosage: CYCLE 1.
     Route: 042
  9. CYTARABINE [Suspect]
     Dosage: CYCLE 2.
     Route: 042
  10. THIAMINE HCL [Concomitant]
     Route: 042
  11. MABTHERA [Suspect]
     Indication: B-CELL LYMPHOMA
     Dosage: 1 ST CYCLE
     Route: 037
  12. CYTARABINE [Suspect]
     Dosage: CYCLE 2.
     Route: 037
  13. METHOTREXATE [Suspect]
     Indication: B-CELL LYMPHOMA
     Dosage: CYCLE 1.
     Route: 042
  14. DI-ADRESON-F [Concomitant]
     Indication: PROPHYLAXIS
     Route: 037
  15. DEXAMETHASONE [Suspect]
     Indication: B-CELL LYMPHOMA
     Dosage: CYCLE 1.
     Route: 048
  16. DI-ADRESON-F [Concomitant]
     Route: 037
     Dates: start: 20100719, end: 20110719
  17. MABTHERA [Suspect]
     Dosage: CYCLE 2.
     Route: 042
  18. FOLIC ACID [Concomitant]
     Indication: PROPHYLAXIS
     Route: 042
  19. DI-ADRESON-F [Concomitant]
     Route: 037
     Dates: start: 20100730, end: 20110730
  20. MABTHERA [Suspect]
     Dosage: CYCLE 1
     Route: 042
  21. FOLIC ACID [Concomitant]
     Route: 042

REACTIONS (1)
  - DISEASE PROGRESSION [None]
